FAERS Safety Report 26019620 (Version 1)
Quarter: 2025Q4

REPORT INFORMATION
  Report Type: Spontaneous
  Country: BR (occurrence: BR)
  Receive Date: 20251110
  Receipt Date: 20251110
  Transmission Date: 20260117
  Serious: Yes (Hospitalization, Other)
  Sender: TORRENT PHARMA INC.
  Company Number: BR-TORRENT-00006534

PATIENT
  Age: 33 Year
  Sex: Female

DRUGS (3)
  1. LAMOTRIGINE [Suspect]
     Active Substance: LAMOTRIGINE
     Indication: Depression
     Dosage: 1 TABLET AT NIGHT
     Route: 048
     Dates: start: 20220810, end: 202209
  2. AMITRIPTYLINE [Concomitant]
     Active Substance: AMITRIPTYLINE
     Indication: Pain management
     Dosage: UNKNOWN
     Route: 065
  3. VENLAFAXINE [Concomitant]
     Active Substance: VENLAFAXINE HYDROCHLORIDE
     Indication: Product used for unknown indication
     Route: 065

REACTIONS (15)
  - Toxic epidermal necrolysis [Unknown]
  - Malaise [Unknown]
  - Mucosal disorder [Unknown]
  - Conjunctivitis [Unknown]
  - Pain [Unknown]
  - Urinary tract infection [Unknown]
  - Herpes simplex [Unknown]
  - Persistent corneal epithelial defect [Unknown]
  - Infective keratitis [Unknown]
  - Ulcerative keratitis [Unknown]
  - Blindness [Unknown]
  - Trichiasis [Unknown]
  - Off label use [Unknown]
  - Corneal perforation [Unknown]
  - Dermatitis bullous [Unknown]

NARRATIVE: CASE EVENT DATE: 20220801
